FAERS Safety Report 4281953-1 (Version None)
Quarter: 2004Q1

REPORT INFORMATION
  Report Type: 
  Country: None (occurrence: None)
  Receive Date: 20040128
  Receipt Date: 20040119
  Transmission Date: 20041129
  Serious: Yes (Other)
  Sender: FDA-Public Use
  Company Number: 2004US000079

PATIENT
  Age: 52 Year
  Sex: Male

DRUGS (2)
  1. PROGRAF [Suspect]
     Indication: LIVER TRANSPLANT
     Dosage: 2 MG, BID
  2. SIROLIMUS (SIROLIMUS) [Concomitant]

REACTIONS (1)
  - GLOMERULONEPHRITIS MEMBRANOUS [None]
